FAERS Safety Report 10286059 (Version 2)
Quarter: 2014Q3

REPORT INFORMATION
  Report Type: Spontaneous
  Country: IT (occurrence: IT)
  Receive Date: 20140709
  Receipt Date: 20140715
  Transmission Date: 20150326
  Serious: Yes (Life-Threatening, Hospitalization, Other)
  Sender: FDA-Public Use
  Company Number: IT-ELI_LILLY_AND_COMPANY-IT201407001269

PATIENT
  Age: 42 Year
  Sex: Female
  Weight: 64 kg

DRUGS (15)
  1. DEPAKENE [Suspect]
     Active Substance: VALPROIC ACID
     Dosage: 500 MG, UNKNOWN
     Route: 048
     Dates: start: 20140617, end: 20140617
  2. ABILIFY [Suspect]
     Active Substance: ARIPIPRAZOLE
     Indication: PRODUCT USED FOR UNKNOWN INDICATION
     Dosage: UNK, UNKNOWN
     Route: 048
     Dates: start: 20140617, end: 20140617
  3. QUETIAPINE [Suspect]
     Active Substance: QUETIAPINE
     Indication: PRODUCT USED FOR UNKNOWN INDICATION
     Dosage: UNK, UNKNOWN
     Route: 048
     Dates: start: 20140617, end: 20140617
  4. DEPAKENE [Suspect]
     Active Substance: VALPROIC ACID
     Indication: PRODUCT USED FOR UNKNOWN INDICATION
     Dosage: 500 MG, BID
     Route: 065
  5. VALDORM                            /00246102/ [Suspect]
     Active Substance: VALERIAN
     Indication: PRODUCT USED FOR UNKNOWN INDICATION
     Dosage: UNK, UNKNOWN
     Route: 048
     Dates: start: 20140617, end: 20140617
  6. ZELDOX [Suspect]
     Active Substance: ZIPRASIDONE
     Dosage: 20 MG, UNKNOWN
     Route: 065
     Dates: start: 20140617, end: 20140617
  7. CYMBALTA [Suspect]
     Active Substance: DULOXETINE HYDROCHLORIDE
     Dosage: 30 MG, UNKNOWN
     Route: 048
     Dates: start: 20140617, end: 20140617
  8. ZELDOX [Suspect]
     Active Substance: ZIPRASIDONE
     Dosage: 40 MG, UNKNOWN
     Route: 065
     Dates: start: 20140617, end: 20140617
  9. ENTUMIN [Concomitant]
     Active Substance: CLOTHIAPINE
     Dosage: 15 DROPS
  10. CYMBALTA [Suspect]
     Active Substance: DULOXETINE HYDROCHLORIDE
     Dosage: 90 MG, QD
     Route: 065
     Dates: start: 20140620
  11. DEPAKENE [Suspect]
     Active Substance: VALPROIC ACID
     Dosage: 300 MG, UNKNOWN
     Route: 048
     Dates: start: 20140617, end: 20140617
  12. CYMBALTA [Suspect]
     Active Substance: DULOXETINE HYDROCHLORIDE
     Indication: PRODUCT USED FOR UNKNOWN INDICATION
     Dosage: 60 MG, QD
  13. ZELDOX [Suspect]
     Active Substance: ZIPRASIDONE
     Indication: PRODUCT USED FOR UNKNOWN INDICATION
     Dosage: 40 MG, QD
     Route: 065
  14. CYMBALTA [Suspect]
     Active Substance: DULOXETINE HYDROCHLORIDE
     Dosage: 60 MG, UNK
     Dates: start: 20140617, end: 20140617
  15. LAMICTAL [Concomitant]
     Active Substance: LAMOTRIGINE
     Dosage: 25 MG, QD

REACTIONS (6)
  - Coma [Recovering/Resolving]
  - Suicide attempt [Recovering/Resolving]
  - Drug abuse [Recovering/Resolving]
  - Blood creatine phosphokinase increased [Recovering/Resolving]
  - Intentional overdose [Unknown]
  - Platelet count decreased [Recovered/Resolved]

NARRATIVE: CASE EVENT DATE: 20140617
